FAERS Safety Report 18973287 (Version 2)
Quarter: 2021Q1

REPORT INFORMATION
  Report Type: Report from Study
  Country: CH (occurrence: CH)
  Receive Date: 20210305
  Receipt Date: 20210318
  Transmission Date: 20210420
  Serious: Yes (Hospitalization)
  Sender: FDA-Public Use
  Company Number: NVSC2021CH047997

PATIENT
  Age: 76 Year
  Sex: Male
  Weight: 99 kg

DRUGS (6)
  1. INC280 [Suspect]
     Active Substance: CAPMATINIB
     Dosage: 200 MG, BID
     Route: 065
  2. TORASEMIDE [Concomitant]
     Active Substance: TORSEMIDE
     Indication: LYMPHOEDEMA
     Dosage: 5 MG
     Route: 065
     Dates: start: 202011, end: 20210222
  3. TAPENTADOL [Concomitant]
     Active Substance: TAPENTADOL
     Indication: PAIN
     Dosage: 50 MG
     Route: 065
     Dates: start: 20210107, end: 20210222
  4. PREGABALIN. [Concomitant]
     Active Substance: PREGABALIN
     Indication: PAIN
     Dosage: 50 MG
     Route: 065
     Dates: start: 20200901, end: 20210222
  5. INC280 [Suspect]
     Active Substance: CAPMATINIB
     Indication: NON-SMALL CELL LUNG CANCER
     Dosage: 400 MG, BID
     Route: 048
     Dates: start: 20210206, end: 20210222
  6. CELECOXIB. [Concomitant]
     Active Substance: CELECOXIB
     Indication: PAIN
     Dosage: 100 MG
     Route: 065
     Dates: start: 2019, end: 20210222

REACTIONS (6)
  - Skin ulcer [Recovering/Resolving]
  - Condition aggravated [Recovering/Resolving]
  - Weight increased [Recovering/Resolving]
  - Scrotal oedema [Recovering/Resolving]
  - Lymphorrhoea [Recovering/Resolving]
  - Lymphoedema [Recovering/Resolving]

NARRATIVE: CASE EVENT DATE: 20210223
